FAERS Safety Report 5802803-5 (Version None)
Quarter: 2008Q3

REPORT INFORMATION
  Report Type: 
  Country: None (occurrence: None)
  Receive Date: 20080708
  Receipt Date: 20080630
  Transmission Date: 20090109
  Serious: Yes (Hospitalization, Other)
  Sender: FDA-Public Use
  Company Number: GB-AMGEN-US291142

PATIENT
  Age: 64 Year
  Sex: Female
  Weight: 90 kg

DRUGS (3)
  1. ENBREL [Suspect]
     Indication: PSORIATIC ARTHROPATHY
     Route: 058
     Dates: start: 20071101, end: 20080401
  2. ORLISTAT [Concomitant]
     Dosage: UNKNOWN
  3. NEOTIGASON [Concomitant]
     Indication: PSORIASIS
     Route: 048

REACTIONS (4)
  - CONDITION AGGRAVATED [None]
  - FLUSHING [None]
  - HALLUCINATION [None]
  - NIGHT SWEATS [None]
